FAERS Safety Report 7072838-6 (Version None)
Quarter: 2010Q4

REPORT INFORMATION
  Report Type: 
  Country: None (occurrence: None)
  Receive Date: 20101029
  Receipt Date: 20100311
  Transmission Date: 20110411
  Serious: No
  Sender: FDA-Public Use
  Company Number: A0850900A

PATIENT
  Sex: Male

DRUGS (1)
  1. ADVAIR DISKUS 100/50 [Suspect]
     Indication: PRODUCT USED FOR UNKNOWN INDICATION
     Route: 055
     Dates: start: 20091001

REACTIONS (8)
  - COUGH [None]
  - FOOD ALLERGY [None]
  - HYPERSENSITIVITY [None]
  - INSOMNIA [None]
  - LUNG INFECTION [None]
  - NASAL DISCOMFORT [None]
  - SEASONAL ALLERGY [None]
  - SNEEZING [None]
